FAERS Safety Report 11053634 (Version 3)
Quarter: 2015Q2

REPORT INFORMATION
  Report Type: Spontaneous
  Country: US (occurrence: US)
  Receive Date: 20150421
  Receipt Date: 20150605
  Transmission Date: 20150821
  Serious: No
  Sender: FDA-Public Use
  Company Number: US-JNJFOC-20150302763

PATIENT
  Sex: Male

DRUGS (2)
  1. RISPERDAL [Suspect]
     Active Substance: RISPERIDONE
     Indication: PRODUCT USED FOR UNKNOWN INDICATION
     Route: 048
     Dates: start: 1988, end: 1992
  2. RISPERIDONE. [Suspect]
     Active Substance: RISPERIDONE
     Indication: PRODUCT USED FOR UNKNOWN INDICATION
     Route: 065

REACTIONS (7)
  - Product use issue [Unknown]
  - Feeling abnormal [Unknown]
  - Stress [Unknown]
  - Scoliosis [Not Recovered/Not Resolved]
  - Musculoskeletal deformity [Unknown]
  - Gynaecomastia [Not Recovered/Not Resolved]
  - Psychological trauma [Unknown]
